FAERS Safety Report 8980293 (Version 2)
Quarter: 2013Q1

REPORT INFORMATION
  Report Type: Spontaneous
  Country: US (occurrence: US)
  Receive Date: 20121221
  Receipt Date: 20130129
  Transmission Date: 20140127
  Serious: No
  Sender: FDA-Public Use
  Company Number: US-VERTEX PHARMACEUTICALS INC.-2012-026376

PATIENT
  Sex: Female
  Weight: 68 kg

DRUGS (3)
  1. KALYDECO [Suspect]
     Indication: CYSTIC FIBROSIS
     Dosage: 150 MG, BID
     Route: 048
  2. CREON [Concomitant]
  3. MULTIVITAMIN                       /00097801/ [Concomitant]

REACTIONS (1)
  - Nasopharyngitis [Not Recovered/Not Resolved]
